FAERS Safety Report 4468418-9 (Version None)
Quarter: 2004Q4

REPORT INFORMATION
  Report Type: 
  Country: None (occurrence: None)
  Receive Date: 20041007
  Receipt Date: 20040818
  Transmission Date: 20050328
  Serious: Yes (Other)
  Sender: FDA-Public Use
  Company Number: PHNU2004DE02934

PATIENT
  Age: 28 Year
  Sex: Female

DRUGS (13)
  1. CAFERGOT PB [Suspect]
     Indication: MIGRAINE
     Dosage: 1 DF, ONCE/SINGLE
     Route: 054
     Dates: start: 19880122, end: 19880122
  2. VALIUM [Concomitant]
     Dosage: 20 MG/D (5-5-10)
     Dates: start: 19880101
  3. HEPARIN [Concomitant]
     Dates: start: 19880101
  4. TRAMAL [Concomitant]
  5. PARTUSISTEN [Concomitant]
  6. TEMGESIC ^ESSEX PHARMA^ [Concomitant]
     Dosage: 1 DF/D
     Dates: start: 19880101
  7. MAGNESIUM [Concomitant]
     Dates: start: 19880101
  8. STEROFUNDIN [Concomitant]
     Dates: start: 19880101
  9. MEZLOCILLIN [Concomitant]
     Dates: start: 19880101
  10. ACETAMINOPHEN [Concomitant]
     Dosage: UNK, ONCE/SINGLE
     Route: 054
     Dates: start: 19880101
  11. CELESTAN [Concomitant]
  12. ACETYLSALICYLIC ACID [Concomitant]
     Dosage: 1 DF, ONCE/SINGLE
     Route: 048
     Dates: start: 19880101
  13. HERBALIFE PRODUCTS [Concomitant]
     Dosage: UNK, UNK
     Route: 048
     Dates: start: 19880101

REACTIONS (3)
  - ABDOMINAL PAIN [None]
  - CAESAREAN SECTION [None]
  - DRUG EXPOSURE DURING PREGNANCY [None]
